FAERS Safety Report 5659025-0 (Version None)
Quarter: 2008Q1

REPORT INFORMATION
  Report Type: 
  Country: None (occurrence: None)
  Receive Date: 20080310
  Receipt Date: 20070309
  Transmission Date: 20080703
  Serious: No
  Sender: FDA-Public Use
  Company Number: GB-BAYER-200712239GDS

PATIENT
  Sex: Female

DRUGS (1)
  1. ANAPROX DS [Suspect]
     Indication: DRUG USE FOR UNKNOWN INDICATION
     Route: 065

REACTIONS (1)
  - RASH GENERALISED [None]
